FAERS Safety Report 5232911-1 (Version None)
Quarter: 2007Q1

REPORT INFORMATION
  Report Type: 
  Country: None (occurrence: None)
  Receive Date: 20061201
  Receipt Date: 20060922
  Transmission Date: 20070707
  Serious: No
  Sender: FDA-Public Use
  Company Number: 2006PV021757

PATIENT
  Age: 56 Year
  Sex: Female

DRUGS (6)
  1. BYETTA [Suspect]
     Dosage: SEE IMAGE
     Route: 058
     Dates: start: 20060101, end: 20060101
  2. BYETTA [Suspect]
     Dosage: SEE IMAGE
     Route: 058
     Dates: start: 20060101
  3. BYETTA [Suspect]
     Dosage: SEE IMAGE
     Route: 058
     Dates: start: 20060101
  4. AVANDIA [Suspect]
     Dosage: SEE IMAGE
     Route: 048
     Dates: start: 20060101, end: 20060801
  5. AVANDIA [Suspect]
     Dosage: SEE IMAGE
     Route: 048
     Dates: start: 20060801, end: 20060901
  6. AVANDIA [Suspect]
     Dosage: SEE IMAGE
     Route: 048
     Dates: start: 20060901

REACTIONS (2)
  - DERMATITIS CONTACT [None]
  - MUSCLE SPASMS [None]
